FAERS Safety Report 15518124 (Version 3)
Quarter: 2018Q4

REPORT INFORMATION
  Report Type: Spontaneous
  Country: FR (occurrence: FR)
  Receive Date: 20181017
  Receipt Date: 20181107
  Transmission Date: 20190205
  Serious: Yes (Hospitalization)
  Sender: FDA-Public Use
  Company Number: FR-PFIZER INC-2018414662

PATIENT
  Age: 69 Year
  Sex: Male
  Weight: 132 kg

DRUGS (12)
  1. PREVISCAN [FLUINDIONE] [Concomitant]
     Active Substance: FLUINDIONE
     Dosage: UNK
  2. RAMIPRIL. [Suspect]
     Active Substance: RAMIPRIL
     Indication: HYPERTENSION
     Dosage: 2 DF, 1X/DAY
     Route: 048
     Dates: end: 20151123
  3. UN-ALFA [Concomitant]
     Active Substance: ALFACALCIDOL
     Dosage: UNK
  4. CALCIDIA [Concomitant]
     Active Substance: CALCIUM CARBONATE
     Dosage: UNK
  5. ALLOPURINOL. [Concomitant]
     Active Substance: ALLOPURINOL
     Dosage: UNK
  6. FUROSEMIDE. [Suspect]
     Active Substance: FUROSEMIDE
     Indication: HYPERTENSION
     Dosage: 4 DF, 1X/DAY
     Route: 048
     Dates: end: 20151123
  7. PRAVASTATINE [PRAVASTATIN SODIUM] [Concomitant]
     Dosage: UNK
  8. TADENAN [Concomitant]
     Active Substance: PYGEUM
     Dosage: UNK
  9. ZOLPIDEM [Concomitant]
     Active Substance: ZOLPIDEM\ZOLPIDEM TARTRATE
     Dosage: UNK
  10. INSPRA [Suspect]
     Active Substance: EPLERENONE
     Indication: HYPERTENSION
     Dosage: 1 DF, 1X/DAY
     Route: 048
  11. METOPROLOL TARTRATE. [Concomitant]
     Active Substance: METOPROLOL TARTRATE
     Dosage: UNK
  12. KARDEGIC [Concomitant]
     Active Substance: ASPIRIN DL-LYSINE
     Dosage: UNK

REACTIONS (1)
  - Acute kidney injury [Recovered/Resolved]

NARRATIVE: CASE EVENT DATE: 20151123
